FAERS Safety Report 9284353 (Version 3)
Quarter: 2013Q3

REPORT INFORMATION
  Report Type: Spontaneous
  Country: US (occurrence: US)
  Receive Date: 20130510
  Receipt Date: 20130801
  Transmission Date: 20140515
  Serious: Yes (Hospitalization, Other)
  Sender: FDA-Public Use
  Company Number: US-PFIZER INC-2013141295

PATIENT
  Age: 48 Year
  Sex: Male

DRUGS (1)
  1. ZYVOX [Suspect]
     Indication: BACTERIAL INFECTION
     Dosage: 600 MG, 2X/DAY
     Route: 048

REACTIONS (14)
  - Malaise [Unknown]
  - Candida infection [Unknown]
  - Cerebrovascular accident [Unknown]
  - Hypertension [Unknown]
  - Heart rate increased [Unknown]
  - Headache [Unknown]
  - Dizziness [Unknown]
  - Nausea [Unknown]
  - Dyspnoea [Unknown]
  - Tachyphrenia [Unknown]
  - Confusional state [Unknown]
  - Insomnia [Unknown]
  - Dysgeusia [Unknown]
  - Muscle tightness [Unknown]
